FAERS Safety Report 6198985-9 (Version None)
Quarter: 2009Q2

REPORT INFORMATION
  Report Type: 
  Country: None (occurrence: None)
  Receive Date: 20090522
  Receipt Date: 20090513
  Transmission Date: 20091009
  Serious: Yes (Hospitalization)
  Sender: FDA-Public Use
  Company Number: US-ELI_LILLY_AND_COMPANY-US200905002556

PATIENT
  Sex: Male

DRUGS (7)
  1. HUMULIN N [Suspect]
     Dosage: UNK, 2/D
  2. HUMULIN R [Suspect]
     Dosage: 50 U, UNK
  3. HUMULIN R [Suspect]
     Dosage: UNK, 2/D
  4. GLUCOPHAGE [Concomitant]
  5. LANTUS [Concomitant]
     Dosage: UNK, 2/D
  6. PRAVASTATIN [Concomitant]
  7. GABAPENTIN [Concomitant]
     Dosage: 300 MG, 2/D

REACTIONS (3)
  - FEELING ABNORMAL [None]
  - LEG AMPUTATION [None]
  - TREMOR [None]
